FAERS Safety Report 7266623-X (Version None)
Quarter: 2011Q1

REPORT INFORMATION
  Report Type: 
  Country: None (occurrence: None)
  Receive Date: 20110131
  Receipt Date: 20110119
  Transmission Date: 20110831
  Serious: Yes (Hospitalization, Other)
  Sender: FDA-Public Use
  Company Number: FR-BRISTOL-MYERS SQUIBB COMPANY-15472079

PATIENT
  Age: 48 Year
  Sex: Female

DRUGS (5)
  1. ORENCIA [Suspect]
     Route: 042
     Dates: start: 20090331, end: 20091201
  2. TOCILIZUMAB [Suspect]
     Dates: end: 20100901
  3. ENBREL [Concomitant]
  4. HUMIRA [Concomitant]
  5. MABTHERA [Suspect]

REACTIONS (8)
  - DIZZINESS POSTURAL [None]
  - POLYNEUROPATHY [None]
  - DIZZINESS [None]
  - DEMYELINATION [None]
  - ASTHENIA [None]
  - HEADACHE [None]
  - INFUSION RELATED REACTION [None]
  - CEREBROVASCULAR DISORDER [None]
